FAERS Safety Report 10243467 (Version 2)
Quarter: 2014Q2

REPORT INFORMATION
  Report Type: Spontaneous
  Country: NL (occurrence: NL)
  Receive Date: 20140618
  Receipt Date: 20140618
  Transmission Date: 20141212
  Serious: Yes (Death)
  Sender: FDA-Public Use
  Company Number: NL-AMGEN-NLDSP2012085544

PATIENT
  Age: 76 Year
  Sex: Male

DRUGS (3)
  1. XGEVA [Suspect]
     Indication: PROPHYLAXIS
     Dosage: 1.7 ML, Q4WK
     Route: 058
     Dates: start: 20120718, end: 20121205
  2. XGEVA [Suspect]
     Indication: METASTASES TO BONE
  3. CALCI CHEW [Concomitant]

REACTIONS (2)
  - Death [Fatal]
  - Nausea [Unknown]
